FAERS Safety Report 8738590 (Version 2)
Quarter: 2012Q4

REPORT INFORMATION
  Report Type: 
  Country: US (occurrence: US)
  Receive Date: 20120823
  Receipt Date: 20120904
  Transmission Date: 20130627
  Serious: Yes (Other)
  Sender: FDA-Public Use
  Company Number: PHEH2012US016337

PATIENT
  Sex: Male

DRUGS (1)
  1. STALEVO [Suspect]

REACTIONS (4)
  - Shock [Unknown]
  - Musculoskeletal stiffness [Unknown]
  - Feeling abnormal [Unknown]
  - Movement disorder [Unknown]
